FAERS Safety Report 22291701 (Version 1)
Quarter: 2023Q2

REPORT INFORMATION
  Report Type: Spontaneous
  Country: US (occurrence: US)
  Receive Date: 20230507
  Receipt Date: 20230507
  Transmission Date: 20230722
  Serious: No
  Sender: FDA-Public Use
  Company Number: US-SA-SAC20230502001158

PATIENT
  Sex: Female

DRUGS (1)
  1. DUPIXENT [Suspect]
     Active Substance: DUPILUMAB
     Dosage: UNK
     Route: 065

REACTIONS (7)
  - Erythema [Unknown]
  - Anosmia [Unknown]
  - Dermatitis contact [Unknown]
  - Nasal polyps [Unknown]
  - Condition aggravated [Unknown]
  - Condition aggravated [Unknown]
  - Intentional product misuse [Unknown]
